FAERS Safety Report 4467955-0 (Version None)
Quarter: 2004Q4

REPORT INFORMATION
  Report Type: 
  Country: None (occurrence: None)
  Receive Date: 20041004
  Receipt Date: 20040927
  Transmission Date: 20050328
  Serious: No
  Sender: FDA-Public Use
  Company Number: 2004UW20218

PATIENT
  Sex: Female

DRUGS (5)
  1. SEROQUEL [Suspect]
     Dosage: 300 MG QD PO
     Route: 048
  2. VALPROATE SODIUM [Suspect]
     Dosage: 750 MG QD
  3. GLYBURIDE [Suspect]
     Dosage: 10 MG BID
  4. METFORMIN HCL [Suspect]
     Dosage: 2500 MG QD
  5. ZOCOR [Suspect]

REACTIONS (2)
  - BALANCE DISORDER [None]
  - DIFFICULTY IN WALKING [None]
